FAERS Safety Report 7452782 (Version 2)
Quarter: 2014Q1

REPORT INFORMATION
  Report Type: Spontaneous
  Country: US (occurrence: US)
  Receive Date: 20100702
  Receipt Date: 20140321
  Transmission Date: 20141002
  Serious: Yes (Hospitalization, Other)
  Sender: FDA-Public Use
  Company Number: US-ROCHE-695927

PATIENT
  Age: 17 Year
  Sex: Male
  Weight: 90.7 kg

DRUGS (8)
  1. ACCUTANE [Suspect]
     Indication: ACNE CYSTIC
     Route: 048
     Dates: start: 20010524, end: 200110
  2. ACCUTANE [Suspect]
     Dosage: FOR FIRST SEVERAL WEEKS
     Route: 048
  3. ACCUTANE [Suspect]
     Dosage: DOSE INCREASED
     Route: 048
  4. ACCUTANE [Suspect]
     Dosage: 40 MG MORNING AND 60 MG NIGHT
     Route: 048
  5. ACCUTANE [Suspect]
     Dosage: DOSE DECREASED
     Route: 048
  6. ACCUTANE [Suspect]
     Dosage: DOSE DECREASED
     Route: 048
     Dates: start: 20021219, end: 200302
  7. AMOXICILLIN [Concomitant]
  8. DIFFERIN [Concomitant]
     Route: 065

REACTIONS (11)
  - Colitis ulcerative [Unknown]
  - Inflammatory bowel disease [Unknown]
  - Crohn^s disease [Unknown]
  - Depression [Unknown]
  - Deep vein thrombosis [Unknown]
  - Intestinal obstruction [Unknown]
  - Sinusitis [Unknown]
  - Pharyngitis [Unknown]
  - Lip dry [Unknown]
  - Fatigue [Unknown]
  - Blood cholesterol increased [Unknown]
